FAERS Safety Report 18109464 (Version 1)
Quarter: 2020Q3

REPORT INFORMATION
  Report Type: Spontaneous
  Country: US (occurrence: US)
  Receive Date: 20200804
  Receipt Date: 20200804
  Transmission Date: 20201103
  Serious: Yes (Hospitalization)
  Sender: FDA-Public Use
  Company Number: None

PATIENT
  Age: 16 Year
  Sex: Female
  Weight: 67.5 kg

DRUGS (1)
  1. BLUEMEN CLEAR ADVANCED HAND SANITIZER [Suspect]
     Active Substance: ALCOHOL

REACTIONS (6)
  - Recalled product [None]
  - Recalled product administered [None]
  - Suspected product contamination [None]
  - Seizure [None]
  - Product contamination chemical [None]
  - Blood methanol [None]

NARRATIVE: CASE EVENT DATE: 20200713
